FAERS Safety Report 5892412-4 (Version None)
Quarter: 2008Q3

REPORT INFORMATION
  Report Type: 
  Country: None (occurrence: None)
  Receive Date: 20080919
  Receipt Date: 20080919
  Transmission Date: 20090109
  Serious: Yes (Other)
  Sender: FDA-Public Use
  Company Number: None

PATIENT
  Age: 35 Year
  Sex: Female

DRUGS (3)
  1. VENOFER [Suspect]
     Indication: IRON DEFICIENCY ANAEMIA
     Dosage: 500MG ONE TIME DOSE IV DRIP  4 HOUR INFUSION
     Route: 042
     Dates: start: 20080911, end: 20080911
  2. SINGULAIR [Concomitant]
  3. MULTI-VITAMINS [Concomitant]

REACTIONS (1)
  - CHROMATURIA [None]
